FAERS Safety Report 17562017 (Version 3)
Quarter: 2020Q1

REPORT INFORMATION
  Report Type: Spontaneous
  Country: US (occurrence: US)
  Receive Date: 20200319
  Receipt Date: 20200327
  Transmission Date: 20200409
  Serious: No
  Sender: FDA-Public Use
  Company Number: US-PFIZER INC-2020118757

PATIENT
  Sex: Female

DRUGS (1)
  1. EUCRISA [Suspect]
     Active Substance: CRISABOROLE
     Indication: ERYTHEMA
     Dosage: UNK

REACTIONS (4)
  - Application site erythema [Unknown]
  - Application site swelling [Unknown]
  - Drug ineffective [Unknown]
  - Periorbital swelling [Unknown]
